FAERS Safety Report 16269508 (Version 1)
Quarter: 2019Q2

REPORT INFORMATION
  Report Type: Spontaneous
  Country: US (occurrence: US)
  Receive Date: 20190503
  Receipt Date: 20190503
  Transmission Date: 20190711
  Serious: Yes (Hospitalization, Other)
  Sender: FDA-Public Use
  Company Number: US-GLAXOSMITHKLINE-US2019GSK079255

PATIENT
  Age: 58 Year
  Sex: Female

DRUGS (2)
  1. ALBUTEROL. [Suspect]
     Active Substance: ALBUTEROL
     Indication: ASTHMA
     Dosage: UNK
  2. ALBUTEROL. [Suspect]
     Active Substance: ALBUTEROL
     Dosage: 7 PUFF(S), UNK
     Route: 055

REACTIONS (7)
  - Intentional overdose [Unknown]
  - Unresponsive to stimuli [Recovered/Resolved]
  - Electrocardiogram ST segment elevation [Unknown]
  - Cardiac ventriculogram left abnormal [Unknown]
  - Hypotension [Recovered/Resolved]
  - Loss of consciousness [Unknown]
  - Stress cardiomyopathy [Unknown]
